FAERS Safety Report 4885862-6 (Version None)
Quarter: 2006Q1

REPORT INFORMATION
  Report Type: 
  Country: None (occurrence: None)
  Receive Date: 20060117
  Receipt Date: 20060109
  Transmission Date: 20060701
  Serious: Yes (Other)
  Sender: FDA-Public Use
  Company Number: GXKR2006GB00464

PATIENT
  Age: 10 Year
  Sex: Male
  Weight: 40 kg

DRUGS (6)
  1. OMEPRAZOLE [Suspect]
     Dosage: 20 MG, BID, ORAL
     Route: 048
     Dates: start: 20051210, end: 20051217
  2. CLARITHROMYCIN [Suspect]
     Dosage: 500 MG, BID, ORAL
     Route: 048
     Dates: start: 20051210, end: 20051217
  3. AMOXICILLIN [Suspect]
     Dosage: 1 G, BID, ORAL
     Route: 048
     Dates: start: 20051210, end: 20051217
  4. RANITIDINE [Concomitant]
  5. DOMPERIDONE (DOMPERIDONE) [Concomitant]
  6. SENNA (SENNA, SENNA ALEXANDRINA) [Concomitant]

REACTIONS (4)
  - ABNORMAL BEHAVIOUR [None]
  - CONTUSION [None]
  - HEAD BANGING [None]
  - INTENTIONAL SELF-INJURY [None]
